FAERS Safety Report 6451214-0 (Version None)
Quarter: 2009Q4

REPORT INFORMATION
  Report Type: 
  Country: None (occurrence: None)
  Receive Date: 20091123
  Receipt Date: 20091116
  Transmission Date: 20100525
  Serious: Yes (Other)
  Sender: FDA-Public Use
  Company Number: DE-PFIZER INC-2009297929

PATIENT
  Sex: Male

DRUGS (1)
  1. SORTIS [Suspect]
     Route: 048

REACTIONS (1)
  - MUSCLE ATROPHY [None]
